FAERS Safety Report 10192041 (Version 2)
Quarter: 2014Q2

REPORT INFORMATION
  Report Type: Spontaneous
  Country: US (occurrence: US)
  Receive Date: 20140523
  Receipt Date: 20140630
  Transmission Date: 20141212
  Serious: No
  Sender: FDA-Public Use
  Company Number: US-PFIZER INC-2014136316

PATIENT
  Age: 49 Year
  Sex: Male

DRUGS (18)
  1. XELJANZ [Suspect]
     Indication: RHEUMATOID ARTHRITIS
     Dosage: 5 MG, 2X/DAY
     Route: 048
     Dates: start: 201404, end: 201404
  2. TRAMADOL HYDROCHLORIDE [Concomitant]
     Dosage: 50 MG, 1 - 2 TABLETS AS NEEDED EVERY 6 HRS
     Route: 048
  3. NEURONTIN [Concomitant]
     Dosage: 300 MG, 3X/DAY
     Route: 048
  4. TURMERIC [Concomitant]
     Dosage: 500 MG, AS DIRECTED
     Route: 048
  5. MAGNESIUM [Concomitant]
     Dosage: 500 MG, 1 TABLET WITH A MEAL ONCE A DAY
     Route: 048
  6. OSTEO BI-FLEX [Concomitant]
     Dosage: 250-200 MG, 1 TABLET WITH A MEAL ONCE A DAY
     Route: 048
  7. FOLIC ACID [Concomitant]
     Dosage: 1600 UG, 1X/DAY
     Route: 048
  8. VOLTAREN [Concomitant]
     Dosage: 2 GRAMS TO EACH HAND AND 4 GRAMS TO EACH KNEE UP TO 4 TIMES A DAY
     Route: 061
  9. ACETAMINOPHEN [Concomitant]
     Dosage: 500 MG, 1 TABLET AS NEEDED EVERY 6 HRS AS NEEDED
     Route: 048
  10. ASPIRIN [Concomitant]
     Dosage: 81 MG, 1X/DAY
     Route: 048
  11. LISINOPRIL [Concomitant]
     Dosage: 10 MG, 1X/DAY
     Route: 048
  12. LEVEMIR [Concomitant]
     Dosage: 100 UNIT/ML SOLUTION, AS DIRECTED 60 UNITS SQ AC
     Route: 058
  13. MELATONIN [Concomitant]
     Dosage: 3 MG, 1 TABLET AT BEDTIME AS NEEDED WITH FOOD ONCE A DAY AS NEEDED
     Route: 048
  14. GLUCOPHAGE [Concomitant]
     Dosage: 1000 MG, 1 TABLET WITH MEALS ORALLY TWICE A DAY
     Route: 048
  15. LIPITOR [Concomitant]
     Dosage: 10 MG, 1X/DAY
     Route: 048
  16. NOVOLOG [Concomitant]
     Dosage: 100 UNIT/ML AS DIRECTED SUBCUTANEOUS 20 UNITS SQ AC
     Route: 058
  17. OXYCODONE HYDROCHLORIDE [Concomitant]
     Dosage: 20 MG, 1 TABLET AS NEEDED EVERY 6 HRS
     Route: 048
  18. PREDNISONE [Concomitant]
     Dosage: 10 MG, 6TABS QDX3DAYS, STABS QDX3 DAYS, 4TABS QDX3DAYS, 3 TABS QDX3DAYS, 2 TABS QDX3DAYS, 1 TAB QDX3
     Route: 048

REACTIONS (1)
  - Liver function test abnormal [Recovered/Resolved]
